FAERS Safety Report 15635582 (Version 2)
Quarter: 2018Q4

REPORT INFORMATION
  Report Type: Spontaneous
  Country: RU (occurrence: RU)
  Receive Date: 20181120
  Receipt Date: 20181201
  Transmission Date: 20190205
  Serious: Yes (Hospitalization, Other)
  Sender: FDA-Public Use
  Company Number: RU-UCBSA-2018050741

PATIENT
  Age: 40 Year

DRUGS (6)
  1. VIMPAT [Concomitant]
     Active Substance: LACOSAMIDE
     Indication: PRODUCT USED FOR UNKNOWN INDICATION
  2. VALPROIC ACID. [Concomitant]
     Active Substance: VALPROIC ACID
     Indication: PRODUCT USED FOR UNKNOWN INDICATION
  3. KEPPRA [Suspect]
     Active Substance: LEVETIRACETAM
     Dosage: UNK
     Dates: start: 20180706, end: 20180904
  4. KEPPRA [Suspect]
     Active Substance: LEVETIRACETAM
     Indication: EPILEPSY
     Dosage: 3000 MG
     Dates: start: 2008
  5. CONVULEX (VALPROATE SODIUM) [Concomitant]
     Active Substance: VALPROATE SODIUM
     Indication: EPILEPSY
  6. KEPPRA [Suspect]
     Active Substance: LEVETIRACETAM
     Dosage: 1500 MG
     Dates: start: 2011, end: 2013

REACTIONS (4)
  - Skin necrosis [Recovered/Resolved]
  - Infection [Recovered/Resolved]
  - Epilepsy [Unknown]
  - Breast disorder [Recovered/Resolved]

NARRATIVE: CASE EVENT DATE: 2011
